FAERS Safety Report 6598792-9 (Version None)
Quarter: 2010Q1

REPORT INFORMATION
  Report Type: 
  Country: None (occurrence: None)
  Receive Date: 20100224
  Receipt Date: 20100218
  Transmission Date: 20100710
  Serious: Yes (Disabling, Other)
  Sender: FDA-Public Use
  Company Number: US-ROXANE LABORATORIES, INC.-2010-RO-00172RO

PATIENT
  Sex: Male

DRUGS (6)
  1. RISPERIDONE [Suspect]
     Route: 048
  2. RISPERIDONE [Suspect]
  3. COCAINE [Suspect]
     Route: 055
  4. ALCOHOL [Suspect]
  5. PHENYLEPHRINE HCL [Concomitant]
     Indication: PRIAPISM
  6. ANTIBIOTICS [Concomitant]
     Indication: GANGRENE

REACTIONS (5)
  - ALCOHOL ABUSE [None]
  - DRUG ABUSE [None]
  - GANGRENE [None]
  - PENILE NECROSIS [None]
  - PRIAPISM [None]
